FAERS Safety Report 4734120-9 (Version None)
Quarter: 2005Q3

REPORT INFORMATION
  Report Type: 
  Country: None (occurrence: None)
  Receive Date: 20050803
  Receipt Date: 20050803
  Transmission Date: 20060218
  Serious: Yes (Life-Threatening)
  Sender: FDA-Public Use
  Company Number: None

PATIENT
  Sex: Female

DRUGS (1)
  1. LIDOCAINE [Suspect]

REACTIONS (3)
  - CARDIAC ARREST [None]
  - MEDICATION ERROR [None]
  - WRONG DRUG ADMINISTERED [None]
